FAERS Safety Report 9571199 (Version 2)
Quarter: 2013Q4

REPORT INFORMATION
  Report Type: Spontaneous
  Country: BD (occurrence: BD)
  Receive Date: 20131001
  Receipt Date: 20131001
  Transmission Date: 20140711
  Serious: Yes (Other)
  Sender: FDA-Public Use
  Company Number: PHHY2013BD098966

PATIENT
  Age: 30 Year
  Sex: Female
  Weight: 55 kg

DRUGS (4)
  1. VOLTALIN [Suspect]
     Dosage: 100 MG, UNK
     Route: 048
  2. RELENTUS [Concomitant]
     Indication: PAIN
     Dosage: 2 MG, BID
     Route: 048
     Dates: start: 20130906, end: 20130906
  3. XELDRIN [Concomitant]
     Dosage: 20 MG, BID
     Route: 048
     Dates: start: 20130906, end: 20130906
  4. SANDOCAL [Concomitant]
     Dosage: 50 MG, BID
     Route: 048
     Dates: start: 20130906, end: 20130906

REACTIONS (2)
  - Eye pruritus [Recovered/Resolved]
  - Swelling face [Recovered/Resolved]
